FAERS Safety Report 13501619 (Version 1)
Quarter: 2017Q2

REPORT INFORMATION
  Report Type: Spontaneous
  Country: US (occurrence: US)
  Receive Date: 20170501
  Receipt Date: 20170501
  Transmission Date: 20170830
  Serious: Yes (Hospitalization)
  Sender: FDA-Public Use
  Company Number: PHHY2017US060291

PATIENT
  Age: 83 Year
  Sex: Male

DRUGS (1)
  1. LOPERAMIDE [Suspect]
     Active Substance: LOPERAMIDE
     Indication: WEIGHT INCREASED
     Dosage: 400 MG, QD
     Route: 065
     Dates: start: 20150419

REACTIONS (4)
  - Brugada syndrome [Recovered/Resolved]
  - Intentional product misuse [Recovered/Resolved]
  - Electrocardiogram QRS complex prolonged [Recovered/Resolved]
  - Electrocardiogram QT prolonged [Recovered/Resolved]
